FAERS Safety Report 9894251 (Version 1)
Quarter: 2014Q1

REPORT INFORMATION
  Report Type: Spontaneous
  Country: US (occurrence: US)
  Receive Date: 20140213
  Receipt Date: 20140213
  Transmission Date: 20141002
  Serious: Yes (Hospitalization)
  Sender: FDA-Public Use
  Company Number: US-GLAXOSMITHKLINE-A1059853A

PATIENT
  Sex: Male

DRUGS (4)
  1. ADVAIR [Suspect]
     Indication: CHRONIC OBSTRUCTIVE PULMONARY DISEASE
     Dosage: 1PUFF TWICE PER DAY
     Route: 055
     Dates: start: 2011
  2. SPIRIVA [Concomitant]
  3. ALBUTEROL [Concomitant]
  4. NEBULIZER [Concomitant]

REACTIONS (6)
  - Oxygen supplementation [Unknown]
  - Lung disorder [Unknown]
  - Oxygen saturation decreased [Unknown]
  - Drug ineffective [Unknown]
  - Off label use [Unknown]
  - Chest discomfort [Unknown]
